FAERS Safety Report 20596565 (Version 1)
Quarter: 2022Q1

REPORT INFORMATION
  Report Type: Spontaneous
  Country: DE (occurrence: DE)
  Receive Date: 20220315
  Receipt Date: 20220315
  Transmission Date: 20220424
  Serious: Yes (Hospitalization)
  Sender: FDA-Public Use
  Company Number: DE-ELI_LILLY_AND_COMPANY-DE202203002007

PATIENT
  Age: 41 Year
  Sex: Male

DRUGS (5)
  1. ZYPADHERA [Suspect]
     Active Substance: OLANZAPINE PAMOATE
     Indication: Schizoaffective disorder
     Dosage: 405 MG, UNKNOWN
     Route: 065
     Dates: start: 2017
  2. ZYPADHERA [Suspect]
     Active Substance: OLANZAPINE PAMOATE
     Indication: Schizoaffective disorder
     Dosage: 405 MG, UNKNOWN
     Route: 065
     Dates: start: 2017
  3. ZYPADHERA [Suspect]
     Active Substance: OLANZAPINE PAMOATE
     Indication: Schizoaffective disorder
     Dosage: 405 MG, UNKNOWN
     Route: 065
     Dates: start: 2017
  4. MAINTENAN [Concomitant]
     Indication: Product used for unknown indication
     Dosage: 400 MG, UNKNOWN
     Route: 065
  5. LAMOTRIGINE [Concomitant]
     Active Substance: LAMOTRIGINE
     Indication: Product used for unknown indication
     Dosage: 400 UNK, DAILY
     Route: 065

REACTIONS (4)
  - Speech disorder [Unknown]
  - Post-injection delirium sedation syndrome [Unknown]
  - Fatigue [Unknown]
  - Dizziness [Unknown]
